FAERS Safety Report 5353533-8 (Version None)
Quarter: 2007Q2

REPORT INFORMATION
  Report Type: 
  Country: None (occurrence: None)
  Receive Date: 20070612
  Receipt Date: 20070531
  Transmission Date: 20071010
  Serious: No
  Sender: FDA-Public Use
  Company Number: US-ASTRAZENECA-2006UW08291

PATIENT
  Age: 16495 Day
  Sex: Female
  Weight: 91.4 kg

DRUGS (3)
  1. SEROQUEL [Suspect]
     Indication: BIPOLAR DISORDER
     Route: 048
     Dates: start: 20030730, end: 20031112
  2. SEROQUEL [Suspect]
     Indication: DEPRESSION
     Route: 048
     Dates: start: 20030730, end: 20031112
  3. ABILIFY [Concomitant]
     Dates: start: 20070101, end: 20070201

REACTIONS (1)
  - DIABETES MELLITUS [None]
